FAERS Safety Report 12402479 (Version 2)
Quarter: 2016Q2

REPORT INFORMATION
  Report Type: Spontaneous
  Country: US (occurrence: US)
  Receive Date: 20160525
  Receipt Date: 20160527
  Transmission Date: 20160815
  Serious: No
  Sender: FDA-Public Use
  Company Number: US-SA-2016SA044848

PATIENT
  Sex: Male

DRUGS (4)
  1. TOUJEO [Concomitant]
     Active Substance: INSULIN GLARGINE
     Dosage: DOSE:20 UNIT(S)
     Dates: start: 20160101
  2. LANTUS SOLOSTAR [Suspect]
     Active Substance: INSULIN GLARGINE
     Indication: DIABETES MELLITUS
     Route: 065
     Dates: start: 2015
  3. VICTOZA [Concomitant]
     Active Substance: LIRAGLUTIDE
  4. BYETTA [Concomitant]
     Active Substance: EXENATIDE

REACTIONS (2)
  - Paraesthesia [Unknown]
  - Injection site haemorrhage [Unknown]
